FAERS Safety Report 9255296 (Version 1)
Quarter: 2013Q2

REPORT INFORMATION
  Report Type: Spontaneous
  Country: FR (occurrence: FR)
  Receive Date: 20130425
  Receipt Date: 20130425
  Transmission Date: 20140414
  Serious: Yes (Hospitalization)
  Sender: FDA-Public Use
  Company Number: FR-ASTRAZENECA-2013SE25885

PATIENT
  Age: 28150 Day
  Sex: Male

DRUGS (5)
  1. INEXIUM [Suspect]
     Route: 048
     Dates: start: 2011, end: 20130321
  2. PRADAXA [Suspect]
     Route: 048
     Dates: start: 201211, end: 20130321
  3. CORENITEC [Suspect]
     Route: 048
     Dates: start: 2011, end: 20130321
  4. LERCAN [Concomitant]
     Dates: start: 2011
  5. SOTALOL [Concomitant]
     Dates: start: 2011

REACTIONS (1)
  - Jaundice cholestatic [Recovered/Resolved]
